FAERS Safety Report 8582339-1 (Version None)
Quarter: 2012Q3

REPORT INFORMATION
  Report Type: 
  Country: None (occurrence: None)
  Receive Date: 20120809
  Receipt Date: 20120725
  Transmission Date: 20120928
  Serious: Yes (Hospitalization)
  Sender: FDA-Public Use
  Company Number: AT-ROCHE-1069887

PATIENT
  Age: 86 Year
  Sex: Male
  Weight: 69 kg

DRUGS (3)
  1. ZELBORAF [Suspect]
     Indication: MALIGNANT MELANOMA
     Dosage: LAST DOSE PRIOR TO SAE ON 14/MAY/2012
     Route: 048
     Dates: start: 20120126, end: 20120514
  2. ZELBORAF [Suspect]
     Route: 048
     Dates: end: 20120516
  3. ZELBORAF [Suspect]
     Dosage: PERMANENTLY DISCONTINUED
     Dates: end: 20120523

REACTIONS (1)
  - MELANOMATOUS MENINGITIS [None]
